FAERS Safety Report 11441987 (Version 1)
Quarter: 2015Q3

REPORT INFORMATION
  Report Type: Report from Study
  Country: FR (occurrence: FR)
  Receive Date: 20150901
  Receipt Date: 20150901
  Transmission Date: 20151125
  Serious: Yes (Hospitalization, Other)
  Sender: FDA-Public Use
  Company Number: FR-CELGENE-FRA-2015066833

PATIENT
  Age: 77 Year
  Sex: Female
  Weight: 63 kg

DRUGS (14)
  1. REVLIMID [Suspect]
     Active Substance: LENALIDOMIDE
     Dosage: 185 MILLIGRAM
     Route: 048
     Dates: end: 20150622
  2. LIPITOR [Concomitant]
     Active Substance: ATORVASTATIN CALCIUM
     Indication: PLASMA CELL MYELOMA
     Route: 065
  3. PROTONIX [Concomitant]
     Active Substance: PANTOPRAZOLE SODIUM
     Indication: PLASMA CELL MYELOMA
     Route: 065
  4. VALTREX [Concomitant]
     Active Substance: VALACYCLOVIR HYDROCHLORIDE
     Indication: PLASMA CELL MYELOMA
     Route: 065
  5. LYRICA [Concomitant]
     Active Substance: PREGABALIN
     Indication: PLASMA CELL MYELOMA
     Dosage: 10 MILLIGRAM
     Route: 065
  6. DEXAMETHASONE. [Suspect]
     Active Substance: DEXAMETHASONE
     Indication: PLASMA CELL MYELOMA
     Route: 048
     Dates: start: 20150126
  7. VALSARTAN/HYDROCHLOROTHIAZISE [Concomitant]
     Indication: PLASMA CELL MYELOMA
     Dosage: 160/25
     Route: 065
  8. ZYRTEC [Concomitant]
     Active Substance: CETIRIZINE HYDROCHLORIDE
     Indication: PLASMA CELL MYELOMA
     Route: 065
  9. MLN9708 [Suspect]
     Active Substance: IXAZOMIB
     Route: 048
     Dates: end: 20150622
  10. REVLIMID [Suspect]
     Active Substance: LENALIDOMIDE
     Indication: PLASMA CELL MYELOMA
     Route: 048
     Dates: start: 20150126
  11. MLN9708 [Suspect]
     Active Substance: IXAZOMIB
     Indication: PLASMA CELL MYELOMA
     Route: 048
     Dates: start: 20150126
  12. DEXAMETHASONE. [Suspect]
     Active Substance: DEXAMETHASONE
     Route: 048
     Dates: end: 20150622
  13. KARDEGIC [Concomitant]
     Active Substance: ASPIRIN LYSINE
     Indication: PLASMA CELL MYELOMA
     Route: 065
  14. ARANESP [Concomitant]
     Active Substance: DARBEPOETIN ALFA
     Indication: PRODUCT USED FOR UNKNOWN INDICATION
     Dosage: 75 MILLIGRAM
     Route: 065

REACTIONS (4)
  - Hypovolaemic shock [Recovered/Resolved]
  - Orthostatic hypotension [Not Recovered/Not Resolved]
  - Acute kidney injury [Recovered/Resolved]
  - Hypokalaemia [Not Recovered/Not Resolved]

NARRATIVE: CASE EVENT DATE: 20150622
